FAERS Safety Report 4662441-7 (Version None)
Quarter: 2005Q2

REPORT INFORMATION
  Report Type: 
  Country: None (occurrence: None)
  Receive Date: 20050513
  Receipt Date: 20050513
  Transmission Date: 20051028
  Serious: Yes (Death)
  Sender: FDA-Public Use
  Company Number: None

PATIENT
  Age: 86 Year
  Sex: Male
  Weight: 78 kg

DRUGS (7)
  1. WARFARIN  10MG [Suspect]
     Indication: ATRIAL FIBRILLATION
     Dosage: 10MG  ONCE
     Dates: start: 20050502, end: 20050503
  2. WARFARIN  5MG [Suspect]
     Indication: ATRIAL FIBRILLATION
     Dosage: 5MG  ONCE
     Dates: start: 20050503, end: 20050504
  3. AMIODARONE HCL [Concomitant]
  4. ZOSYN [Concomitant]
  5. LEVAQUIN [Concomitant]
  6. PHENYLEPHRINE [Concomitant]
  7. LOVENOX [Concomitant]

REACTIONS (7)
  - ATRIAL FIBRILLATION [None]
  - BUNDLE BRANCH BLOCK LEFT [None]
  - GASTROINTESTINAL HAEMORRHAGE [None]
  - INTERNATIONAL NORMALISED RATIO INCREASED [None]
  - INTESTINAL ISCHAEMIA [None]
  - LOBAR PNEUMONIA [None]
  - RENAL FAILURE [None]
